FAERS Safety Report 7465581-2 (Version None)
Quarter: 2011Q2

REPORT INFORMATION
  Report Type: 
  Country: None (occurrence: None)
  Receive Date: 20110509
  Receipt Date: 20110428
  Transmission Date: 20111010
  Serious: Yes (Hospitalization, Other)
  Sender: FDA-Public Use
  Company Number: AU-ASTRAZENECA-2011SE24428

PATIENT
  Age: 65 Year
  Sex: Female

DRUGS (6)
  1. ACTOS [Suspect]
  2. IBUPROFEN [Suspect]
     Dates: start: 20100823
  3. DIAMICRON [Suspect]
  4. LIPITOR [Suspect]
  5. ATACAND HCT [Suspect]
     Dosage: 16/12.5 MG, 1 UNSPECIFIED DOSE DAILY
     Route: 048
  6. METFORMIN HCL [Suspect]

REACTIONS (2)
  - RENAL FAILURE ACUTE [None]
  - LACTIC ACIDOSIS [None]
